FAERS Safety Report 19964802 (Version 2)
Quarter: 2022Q1

REPORT INFORMATION
  Report Type: Spontaneous
  Country: US (occurrence: US)
  Receive Date: 20211018
  Receipt Date: 20220224
  Transmission Date: 20220423
  Serious: No
  Sender: FDA-Public Use
  Company Number: US-PFIZER INC-202101335569

PATIENT
  Age: 49 Year
  Sex: Female
  Weight: 102.49 kg

DRUGS (12)
  1. IBRANCE [Suspect]
     Active Substance: PALBOCICLIB
     Indication: Breast cancer female
     Dosage: 125 MG, CYCLIC, (FOR 21 DAYS OF 28 DAY CYCLE)
     Route: 048
     Dates: start: 20210817
  2. ANASTROZOLE [Concomitant]
     Active Substance: ANASTROZOLE
     Dosage: UNK
  3. ASPIRIN [Concomitant]
     Active Substance: ASPIRIN
     Dosage: UNK
  4. CAFFEINE CITRATE [Concomitant]
     Active Substance: CAFFEINE CITRATE
     Dosage: UNK
  5. CALCIUM CARBONATE [Concomitant]
     Active Substance: CALCIUM CARBONATE
     Dosage: UNK
  6. MAGNESIUM [Concomitant]
     Active Substance: MAGNESIUM
     Dosage: UNK
  7. PROMETHAZINE HYDROCHLORIDE [Concomitant]
     Active Substance: PROMETHAZINE HYDROCHLORIDE
     Dosage: 25 MG NIGHTLY AS NEEDED
  8. VITAMIN B12 [Concomitant]
     Active Substance: CYANOCOBALAMIN
     Dosage: UNK
  9. ASCORBIC ACID [Concomitant]
     Active Substance: ASCORBIC ACID
     Dosage: UNK
  10. VITAMIN D3 [Concomitant]
     Active Substance: CHOLECALCIFEROL
     Dosage: UNK
  11. ZOFRAN [Concomitant]
     Active Substance: ONDANSETRON HYDROCHLORIDE
     Dosage: UNK
  12. LUPRON DEPOT-PED [Concomitant]
     Active Substance: LEUPROLIDE ACETATE
     Dosage: UNK 11.25 MG KIT )

REACTIONS (20)
  - Neoplasm progression [Unknown]
  - Pain in extremity [Unknown]
  - Dyspnoea [Unknown]
  - Nausea [Unknown]
  - Headache [Unknown]
  - Rash [Unknown]
  - Pruritus [Unknown]
  - Blister [Unknown]
  - Fatigue [Unknown]
  - Pain [Unknown]
  - Fibromyalgia [Unknown]
  - Arthralgia [Unknown]
  - Chest pain [Unknown]
  - Vomiting [Unknown]
  - Decreased appetite [Unknown]
  - Diarrhoea [Unknown]
  - Feeling abnormal [Unknown]
  - Gait disturbance [Unknown]
  - Aphasia [Unknown]
  - Migraine [Unknown]
